FAERS Safety Report 5412106-9 (Version None)
Quarter: 2007Q3

REPORT INFORMATION
  Report Type: 
  Country: None (occurrence: None)
  Receive Date: 20070813
  Receipt Date: 20070808
  Transmission Date: 20080115
  Serious: Yes (Hospitalization)
  Sender: FDA-Public Use
  Company Number: JP-AVENTIS-200712125JP

PATIENT
  Age: 63 Year
  Sex: Male

DRUGS (7)
  1. RILUTEK [Suspect]
     Indication: AMYOTROPHIC LATERAL SCLEROSIS
     Route: 048
     Dates: start: 20050711, end: 20061230
  2. JUVELA NICOTINATE [Concomitant]
     Indication: NERVOUS SYSTEM DISORDER
     Route: 048
     Dates: start: 20050228, end: 20061006
  3. METHYCOBAL                         /00056201/ [Concomitant]
     Indication: NERVOUS SYSTEM DISORDER
     Route: 048
     Dates: start: 20050228, end: 20061230
  4. ALLEGRA [Concomitant]
     Route: 048
     Dates: start: 20060327, end: 20061230
  5. VITAMIN B NOS [Concomitant]
     Indication: NERVOUS SYSTEM DISORDER
     Route: 048
     Dates: start: 20060710, end: 20061230
  6. COMBINATIONS OF VITAMINS [Concomitant]
     Indication: NERVOUS SYSTEM DISORDER
     Route: 048
     Dates: start: 20060710, end: 20061230
  7. DEPAS [Concomitant]
     Route: 048
     Dates: start: 20060710, end: 20061230

REACTIONS (3)
  - ALANINE AMINOTRANSFERASE INCREASED [None]
  - ASPARTATE AMINOTRANSFERASE INCREASED [None]
  - PNEUMONIA ASPIRATION [None]
